FAERS Safety Report 25500019 (Version 1)
Quarter: 2025Q3

REPORT INFORMATION
  Report Type: Spontaneous
  Country: CA (occurrence: CA)
  Receive Date: 20250701
  Receipt Date: 20250701
  Transmission Date: 20251021
  Serious: Yes (Other)
  Sender: MYLAN
  Company Number: CA-MYLANLABS-2025M1054103

PATIENT
  Age: 20 Year
  Sex: Female

DRUGS (16)
  1. ISOTRETINOIN [Suspect]
     Active Substance: ISOTRETINOIN
     Indication: Product used for unknown indication
  2. ISOTRETINOIN [Suspect]
     Active Substance: ISOTRETINOIN
     Route: 065
  3. ISOTRETINOIN [Suspect]
     Active Substance: ISOTRETINOIN
     Route: 065
  4. ISOTRETINOIN [Suspect]
     Active Substance: ISOTRETINOIN
  5. DESLORATADINE [Suspect]
     Active Substance: DESLORATADINE
     Indication: Product used for unknown indication
  6. DESLORATADINE [Suspect]
     Active Substance: DESLORATADINE
     Route: 065
  7. DESLORATADINE [Suspect]
     Active Substance: DESLORATADINE
     Route: 065
  8. DESLORATADINE [Suspect]
     Active Substance: DESLORATADINE
  9. LOPERAMIDE [Suspect]
     Active Substance: LOPERAMIDE
     Indication: Product used for unknown indication
  10. LOPERAMIDE [Suspect]
     Active Substance: LOPERAMIDE
     Route: 065
  11. LOPERAMIDE [Suspect]
     Active Substance: LOPERAMIDE
     Route: 065
  12. LOPERAMIDE [Suspect]
     Active Substance: LOPERAMIDE
  13. QUETIAPINE [Suspect]
     Active Substance: QUETIAPINE
     Indication: Product used for unknown indication
  14. QUETIAPINE [Suspect]
     Active Substance: QUETIAPINE
     Route: 065
  15. QUETIAPINE [Suspect]
     Active Substance: QUETIAPINE
     Route: 065
  16. QUETIAPINE [Suspect]
     Active Substance: QUETIAPINE

REACTIONS (6)
  - Electrocardiogram QT prolonged [Recovered/Resolved]
  - Hallucination [Recovered/Resolved]
  - Pyrexia [Recovered/Resolved]
  - Somnolence [Recovered/Resolved]
  - Tachycardia [Recovered/Resolved]
  - Intentional overdose [Recovered/Resolved]
